FAERS Safety Report 12871170 (Version 5)
Quarter: 2016Q4

REPORT INFORMATION
  Report Type: Spontaneous
  Country: PT (occurrence: PT)
  Receive Date: 20161020
  Receipt Date: 20161230
  Transmission Date: 20170207
  Serious: Yes (Hospitalization, Other)
  Sender: FDA-Public Use
  Company Number: PT-SUNOVION-2016SUN002360

PATIENT

DRUGS (10)
  1. LEVETIRACETAM. [Concomitant]
     Active Substance: LEVETIRACETAM
     Dosage: 1000 MG, SINGLE
     Route: 042
     Dates: start: 20160918, end: 20160918
  2. ZEBINIX [Suspect]
     Active Substance: ESLICARBAZEPINE ACETATE
     Indication: EPILEPSY
     Dosage: 800 MG HS
     Route: 048
     Dates: start: 201601, end: 20160917
  3. ZEBINIX [Suspect]
     Active Substance: ESLICARBAZEPINE ACETATE
     Dosage: 1200 MG, HS
     Route: 048
     Dates: start: 20160918, end: 20161007
  4. LEVETIRACETAM. [Concomitant]
     Active Substance: LEVETIRACETAM
     Indication: EPILEPSY
     Dosage: 2000 MG, DAILY
     Route: 048
     Dates: start: 2010, end: 201607
  5. LEVETIRACETAM. [Concomitant]
     Active Substance: LEVETIRACETAM
     Dosage: 500 MG BID
     Route: 048
     Dates: start: 201611, end: 2016
  6. LEVETIRACETAM. [Concomitant]
     Active Substance: LEVETIRACETAM
     Dosage: 1000 MG, HS
     Route: 048
     Dates: start: 201612
  7. LEVETIRACETAM. [Concomitant]
     Active Substance: LEVETIRACETAM
     Dosage: 500 MG QD
     Route: 048
     Dates: start: 201612
  8. ZEBINIX [Suspect]
     Active Substance: ESLICARBAZEPINE ACETATE
     Dosage: 800 MG, BID
     Route: 048
     Dates: start: 20161008
  9. LEVETIRACETAM. [Concomitant]
     Active Substance: LEVETIRACETAM
     Dosage: 250 MG, BID
     Route: 048
     Dates: start: 20161010, end: 20161108
  10. LEVETIRACETAM. [Concomitant]
     Active Substance: LEVETIRACETAM
     Dosage: TAPERING DOSE
     Route: 048
     Dates: start: 201607, end: 20160916

REACTIONS (9)
  - Haemorrhage [Unknown]
  - Salivary hypersecretion [Unknown]
  - Seizure [Unknown]
  - Inappropriate schedule of drug administration [Unknown]
  - Drug dose titration not performed [Unknown]
  - Petit mal epilepsy [Recovered/Resolved]
  - Off label use [Unknown]
  - Prescribed overdose [Unknown]
  - Road traffic accident [Unknown]

NARRATIVE: CASE EVENT DATE: 201601
